FAERS Safety Report 16742957 (Version 3)
Quarter: 2019Q3

REPORT INFORMATION
  Report Type: Spontaneous
  Country: BR (occurrence: BR)
  Receive Date: 20190827
  Receipt Date: 20190927
  Transmission Date: 20191005
  Serious: Yes (Death, Hospitalization, Other)
  Sender: FDA-Public Use
  Company Number: BR-SA-2019SA232107

PATIENT
  Age: 64 Year
  Sex: Male
  Weight: 70 kg

DRUGS (13)
  1. CARVEDILOL. [Concomitant]
     Active Substance: CARVEDILOL
     Dosage: 1 DF; BID (1 TABLET IN MORNING; 1 TAB AT NIGHT)
     Route: 048
  2. RISPERIDONE. [Concomitant]
     Active Substance: RISPERIDONE
     Dosage: 1 DF, HS
     Route: 048
  3. OMEPRAZOLE. [Concomitant]
     Active Substance: OMEPRAZOLE
     Dosage: 1 DF, QD (1 TAB DAILY IN MORNING)
     Route: 048
  4. PAROXETINE. [Concomitant]
     Active Substance: PAROXETINE
     Dosage: 1 DF, QD (1 TAB IN MORNING)
     Route: 048
  5. RENAGEL [Concomitant]
     Active Substance: SEVELAMER HYDROCHLORIDE
     Dosage: 2 DF; TID (2 TABLET IN BREAKFAST; 2 AT LUNCH; 2 AT DINNER)
     Route: 048
  6. ATROVENT [Concomitant]
     Active Substance: IPRATROPIUM BROMIDE
     Dosage: UNK UNK, BID
     Route: 055
  7. MONOCORDIL [Concomitant]
     Active Substance: ISOSORBIDE MONONITRATE
     Dosage: UNK UNK, TID
     Route: 048
  8. FABRAZYME [Suspect]
     Active Substance: AGALSIDASE BETA
     Indication: FABRY^S DISEASE
     Dosage: 1 MG/KG, QOW, 2 VIALS (TOTAL OF 75 MG)
     Route: 041
     Dates: start: 20180511, end: 20190801
  9. DIAZEPAM. [Concomitant]
     Active Substance: DIAZEPAM
     Dosage: 1 DF, HS
     Route: 048
  10. AAS [Concomitant]
     Active Substance: ASPIRIN
     Dosage: 1 DF, QD
     Route: 048
  11. ALDACTONE [Concomitant]
     Active Substance: SPIRONOLACTONE
     Dosage: 1 DF, QD
     Route: 048
  12. CAPTOPRIL. [Concomitant]
     Active Substance: CAPTOPRIL
     Dosage: 2 DF (2 TAB IN MORNING AND 2 TAB AT NIGHT) BID
     Route: 048
  13. CARNABOL [BUCLIZINE;CAFFEINE;LYSINE;VITAMIN B NOS] [Concomitant]
     Dosage: 1 DF, BID (1 TAB BEFORE LUNCH; 1 TAB BEFORE DINNER)
     Route: 048

REACTIONS (3)
  - Respiratory disorder [Fatal]
  - Product use issue [Unknown]
  - Cardiac failure congestive [Fatal]

NARRATIVE: CASE EVENT DATE: 201810
